FAERS Safety Report 8359209-7 (Version None)
Quarter: 2012Q2

REPORT INFORMATION
  Report Type: 
  Country: None (occurrence: None)
  Receive Date: 20120511
  Receipt Date: 20120507
  Transmission Date: 20120825
  Serious: Yes (Death)
  Sender: FDA-Public Use
  Company Number: 2012AL000045

PATIENT
  Age: 34 Year
  Sex: Male

DRUGS (1)
  1. FOLOTYN [Suspect]
     Indication: LYMPHOMA
     Dates: start: 20120201

REACTIONS (3)
  - DISEASE PROGRESSION [None]
  - LYMPHOMA [None]
  - METASTASES TO NERVOUS SYSTEM [None]
